FAERS Safety Report 7817935-X (Version None)
Quarter: 2011Q4

REPORT INFORMATION
  Report Type: 
  Country: None (occurrence: None)
  Receive Date: 20111017
  Receipt Date: 20111007
  Transmission Date: 20120403
  Serious: Yes (Death)
  Sender: FDA-Public Use
  Company Number: US-GLAXOSMITHKLINE-A0948256A

PATIENT
  Age: 83 Year
  Sex: Female

DRUGS (2)
  1. AVANDAMET [Suspect]
     Indication: TYPE 2 DIABETES MELLITUS
     Dosage: 1TAB TWICE PER DAY
     Route: 048
     Dates: start: 20080101, end: 20110930
  2. ANTIHYPERTENSIVE [Concomitant]

REACTIONS (5)
  - ARRHYTHMIA [None]
  - CARDIAC ARREST [None]
  - HYPOGLYCAEMIA [None]
  - DIABETES MELLITUS [None]
  - ARTERIOSCLEROSIS [None]
